FAERS Safety Report 24080329 (Version 2)
Quarter: 2024Q3

REPORT INFORMATION
  Report Type: Report from Study
  Country: JP (occurrence: JP)
  Receive Date: 20240711
  Receipt Date: 20240808
  Transmission Date: 20241017
  Serious: Yes (Other)
  Sender: TEVA
  Company Number: JP-OTSUKA-2024_018921AA

PATIENT
  Age: 51 Year
  Sex: Female
  Weight: 56 kg

DRUGS (4)
  1. FREMANEZUMAB [Suspect]
     Active Substance: FREMANEZUMAB
     Indication: Migraine
     Dosage: 225 MG/SHOT
     Route: 058
     Dates: start: 20230627, end: 20230627
  2. FREMANEZUMAB [Suspect]
     Active Substance: FREMANEZUMAB
     Dosage: 225 MG/SHOT
     Route: 058
     Dates: start: 20230728, end: 20230728
  3. AMERGE [Concomitant]
     Active Substance: NARATRIPTAN HYDROCHLORIDE
     Indication: Migraine
     Dosage: 2.5MG/DAY
     Route: 048
     Dates: start: 2023
  4. PROPYLTHIOURACIL [Concomitant]
     Active Substance: PROPYLTHIOURACIL
     Indication: Hyperthyroidism
     Dosage: 100 MG/DAY
     Route: 048
     Dates: start: 2023

REACTIONS (1)
  - Hyperthyroidism [Unknown]

NARRATIVE: CASE EVENT DATE: 20230831
